FAERS Safety Report 12635226 (Version 3)
Quarter: 2016Q4

REPORT INFORMATION
  Report Type: Report from Study
  Country: DE (occurrence: DE)
  Receive Date: 20160808
  Receipt Date: 20161004
  Transmission Date: 20170207
  Serious: Yes (Hospitalization)
  Sender: FDA-Public Use
  Company Number: DE-OTSUKA-2016_019376

PATIENT
  Age: 82 Year
  Sex: Male
  Weight: 76.1 kg

DRUGS (3)
  1. DACOGEN [Suspect]
     Active Substance: DECITABINE
     Indication: ACUTE MYELOID LEUKAEMIA
     Dosage: UNK
     Route: 042
  2. *JNJ-56022473 [Suspect]
     Active Substance: INVESTIGATIONAL PRODUCT
     Indication: ACUTE MYELOID LEUKAEMIA
     Dosage: 720 MG, CYCLE 1 DAY 8 AND DAY 22
     Route: 042
     Dates: start: 20160229, end: 20160314
  3. *JNJ-56022473 [Suspect]
     Active Substance: INVESTIGATIONAL PRODUCT
     Dosage: 738 MG
     Route: 042
     Dates: start: 20160329, end: 20160509

REACTIONS (1)
  - Rectal adenoma [Recovered/Resolved]

NARRATIVE: CASE EVENT DATE: 20160613
